FAERS Safety Report 16065736 (Version 1)
Quarter: 2019Q1

REPORT INFORMATION
  Report Type: Spontaneous
  Country: SI (occurrence: SI)
  Receive Date: 20190313
  Receipt Date: 20190313
  Transmission Date: 20190418
  Serious: Yes (Other)
  Sender: FDA-Public Use
  Company Number: SI-AMGEN-SVNSP2019035068

PATIENT
  Sex: Male

DRUGS (4)
  1. PANITUMUMAB [Suspect]
     Active Substance: PANITUMUMAB
     Indication: GASTROINTESTINAL ADENOCARCINOMA
     Dosage: UNK UNK, CYCLICAL
     Route: 065
  2. 5-FU [Concomitant]
     Active Substance: FLUOROURACIL
     Indication: GASTROINTESTINAL ADENOCARCINOMA
     Dosage: UNK UNK, CYCLICAL
  3. OXALIPLATIN. [Concomitant]
     Active Substance: OXALIPLATIN
     Indication: GASTROINTESTINAL ADENOCARCINOMA
     Dosage: UNK UNK, CYCLICAL
  4. FOLINIC ACID [Concomitant]
     Active Substance: LEUCOVORIN
     Indication: GASTROINTESTINAL ADENOCARCINOMA
     Dosage: UNK UNK, CYCLICAL

REACTIONS (3)
  - Hepatic steatosis [Recovering/Resolving]
  - Pulmonary embolism [Unknown]
  - Gastrointestinal adenocarcinoma [Unknown]

NARRATIVE: CASE EVENT DATE: 2017
